FAERS Safety Report 7677575-2 (Version None)
Quarter: 2011Q3

REPORT INFORMATION
  Report Type: 
  Country: None (occurrence: None)
  Receive Date: 20110811
  Receipt Date: 20110811
  Transmission Date: 20111222
  Serious: Yes (Hospitalization)
  Sender: FDA-Public Use
  Company Number: None

PATIENT
  Age: 22 Year
  Sex: Male
  Weight: 127 kg

DRUGS (2)
  1. ZOLPIDEM TARTRATE [Suspect]
     Indication: MUSCULOSKELETAL PAIN
     Dosage: 2 TABLETS
     Route: 048
     Dates: start: 20110809, end: 20110809
  2. ZOLPIDEM TARTRATE [Suspect]
     Indication: ABNORMAL SLEEP-RELATED EVENT
     Dosage: 2 TABLETS
     Route: 048
     Dates: start: 20110809, end: 20110809

REACTIONS (2)
  - SOMNAMBULISM [None]
  - HALLUCINATION [None]
